FAERS Safety Report 11479689 (Version 3)
Quarter: 2015Q4

REPORT INFORMATION
  Report Type: Spontaneous
  Country: AU (occurrence: AU)
  Receive Date: 20150909
  Receipt Date: 20151125
  Transmission Date: 20160304
  Serious: Yes (Hospitalization, Other)
  Sender: FDA-Public Use
  Company Number: AU-SUN PHARMACEUTICAL INDUSTRIES LTD-2015RR-102549

PATIENT

DRUGS (2)
  1. CEFALEXIN [Suspect]
     Active Substance: CEPHALEXIN
     Indication: UPPER RESPIRATORY TRACT INFECTION
     Dosage: 1 WEEK COURSE
     Route: 065
  2. AMOXICILLINE [Suspect]
     Active Substance: AMOXICILLIN
     Indication: PRODUCT USED FOR UNKNOWN INDICATION
     Route: 065

REACTIONS (3)
  - Eosinophilic colitis [Recovered/Resolved]
  - Eosinophilia [Recovered/Resolved]
  - Diarrhoea [Recovered/Resolved]
